FAERS Safety Report 10189671 (Version 1)
Quarter: 2014Q2

REPORT INFORMATION
  Report Type: Spontaneous
  Country: US (occurrence: US)
  Receive Date: 20140522
  Receipt Date: 20140522
  Transmission Date: 20141212
  Serious: Yes (Other)
  Sender: FDA-Public Use
  Company Number: US-SANOFI-AVENTIS-2013SA089356

PATIENT
  Age: 56 Year
  Sex: Female
  Weight: 90.26 kg

DRUGS (3)
  1. LANTUS SOLOSTAR [Suspect]
     Indication: DIABETES MELLITUS
     Dosage: DOSE:20 UNIT(S)
     Route: 058
     Dates: start: 20130722
  2. SOLOSTAR [Concomitant]
     Dates: start: 20130722
  3. CLARITIN [Concomitant]
     Indication: SNEEZING
     Route: 065
     Dates: start: 20130801

REACTIONS (1)
  - Cataract [Unknown]
